FAERS Safety Report 21024989 (Version 1)
Quarter: 2022Q2

REPORT INFORMATION
  Report Type: Spontaneous
  Country: US (occurrence: US)
  Receive Date: 20220629
  Receipt Date: 20220629
  Transmission Date: 20220721
  Serious: No
  Sender: FDA-Public Use
  Company Number: US-AMGEN-USASP2022110264

PATIENT
  Age: 51 Year
  Sex: Male

DRUGS (5)
  1. OTEZLA [Suspect]
     Active Substance: APREMILAST
     Indication: Psoriasis
     Dosage: 30 MILLIGRAM, BID
     Route: 048
     Dates: start: 20220323
  2. CLOBETASOL [Concomitant]
     Active Substance: CLOBETASOL
  3. MELOXICAM [Concomitant]
     Active Substance: MELOXICAM
  4. TESTOSTERONE [Concomitant]
     Active Substance: TESTOSTERONE
  5. CAFFEINE [Concomitant]
     Active Substance: CAFFEINE

REACTIONS (1)
  - Diarrhoea [Not Recovered/Not Resolved]

NARRATIVE: CASE EVENT DATE: 20220101
